FAERS Safety Report 12424456 (Version 1)
Quarter: 2016Q2

REPORT INFORMATION
  Report Type: Spontaneous
  Country: US (occurrence: US)
  Receive Date: 20160601
  Receipt Date: 20160601
  Transmission Date: 20160815
  Serious: No
  Sender: FDA-Public Use
  Company Number: US-NOVEN PHARMACEUTICALS, INC.-US2016000001

PATIENT
  Age: 7 Year
  Sex: Male

DRUGS (2)
  1. DAYTRANA [Suspect]
     Active Substance: METHYLPHENIDATE
     Indication: ATTENTION DEFICIT/HYPERACTIVITY DISORDER
     Dosage: 15 MG, UNKNOWN
     Route: 062
     Dates: start: 201510, end: 20151229
  2. DAYTRANA [Suspect]
     Active Substance: METHYLPHENIDATE
     Dosage: HALF A PATCH, UNK
     Route: 062
     Dates: start: 20151230

REACTIONS (4)
  - Off label use [Not Recovered/Not Resolved]
  - Wrong technique in product usage process [Not Recovered/Not Resolved]
  - Hallucination, visual [Unknown]
  - Feeding disorder [Unknown]

NARRATIVE: CASE EVENT DATE: 2015
